FAERS Safety Report 17190137 (Version 1)
Quarter: 2019Q4

REPORT INFORMATION
  Report Type: Spontaneous
  Country: FR (occurrence: FR)
  Receive Date: 20191223
  Receipt Date: 20191223
  Transmission Date: 20200122
  Serious: Yes (Other)
  Sender: FDA-Public Use
  Company Number: FR-ACCORD-166811

PATIENT
  Age: 39 Year
  Sex: Male
  Weight: 59 kg

DRUGS (1)
  1. CISPLATIN. [Suspect]
     Active Substance: CISPLATIN
     Indication: NEOPLASM MALIGNANT
     Route: 042
     Dates: start: 201909

REACTIONS (2)
  - Tinnitus [Not Recovered/Not Resolved]
  - Hypoacusis [Not Recovered/Not Resolved]

NARRATIVE: CASE EVENT DATE: 201910
